FAERS Safety Report 5371448-6 (Version None)
Quarter: 2007Q2

REPORT INFORMATION
  Report Type: 
  Country: None (occurrence: None)
  Receive Date: 20070615
  Receipt Date: 20060920
  Transmission Date: 20071010
  Serious: Yes (Other)
  Sender: FDA-Public Use
  Company Number: 200615020US

PATIENT
  Age: 24 Year
  Sex: Female
  Weight: 72.7 kg

DRUGS (4)
  1. LANTUS [Suspect]
     Indication: DIABETES MELLITUS INSULIN-DEPENDENT
     Dosage: 48 U QD
     Dates: start: 20050101, end: 20060607
  2. LANTUS [Suspect]
     Indication: DIABETES MELLITUS INSULIN-DEPENDENT
     Dosage: 48 U QD
     Dates: start: 20060608
  3. INSULIN (HUMALOG /00030501/) [Concomitant]
  4. MULTI-VITAMIN [Concomitant]

REACTIONS (6)
  - BLOOD GLUCOSE INCREASED [None]
  - HEADACHE [None]
  - HYPERGLYCAEMIA [None]
  - MALAISE [None]
  - NAUSEA [None]
  - THIRST [None]
